FAERS Safety Report 17933709 (Version 1)
Quarter: 2020Q2

REPORT INFORMATION
  Report Type: Spontaneous
  Country: US (occurrence: US)
  Receive Date: 20200623
  Receipt Date: 20200623
  Transmission Date: 20200714
  Serious: No
  Sender: FDA-Public Use
  Company Number: US-PERRIGO-19US006673

PATIENT
  Age: 22 Year
  Sex: Female
  Weight: 58.96 kg

DRUGS (5)
  1. BORIC ACID [Suspect]
     Active Substance: BORIC ACID
     Indication: VULVOVAGINAL PRURITUS
  2. CONTRACEPTIVES [Concomitant]
     Active Substance: UNSPECIFIED INGREDIENT
     Indication: CONTRACEPTION
     Dosage: UNK
     Route: 065
  3. MICONAZOLE NITRATE. [Suspect]
     Active Substance: MICONAZOLE NITRATE
     Indication: VULVOVAGINAL PRURITUS
  4. BORIC ACID [Suspect]
     Active Substance: BORIC ACID
     Indication: VAGINAL ODOUR
     Dosage: 1 SUPPOSITORY, SINGLE
     Route: 067
     Dates: start: 20190511, end: 20190511
  5. MICONAZOLE NITRATE. [Suspect]
     Active Substance: MICONAZOLE NITRATE
     Indication: VAGINAL ODOUR
     Dosage: 100 MG, SINGLE
     Route: 067
     Dates: start: 20190511, end: 20190511

REACTIONS (7)
  - Vulvovaginal pain [Recovered/Resolved]
  - Vulvovaginal burning sensation [Recovered/Resolved]
  - Off label use [Recovered/Resolved]
  - Urinary tract infection [Recovered/Resolved]
  - Vulvovaginal swelling [Recovered/Resolved]
  - Wrong technique in product usage process [Recovered/Resolved]
  - Chemical burn of genitalia [Recovered/Resolved]

NARRATIVE: CASE EVENT DATE: 20190511
